FAERS Safety Report 9531172 (Version 1)
Quarter: 2013Q3

REPORT INFORMATION
  Report Type: Spontaneous
  Country: FR (occurrence: FR)
  Receive Date: 20130918
  Receipt Date: 20130918
  Transmission Date: 20140515
  Serious: Yes (Life-Threatening)
  Sender: FDA-Public Use
  Company Number: PHHY2013FR102638

PATIENT
  Age: 79 Year
  Sex: Male

DRUGS (1)
  1. ACLASTA [Suspect]
     Indication: OSTEITIS DEFORMANS
     Dosage: 5 MG, UNK
     Route: 042
     Dates: start: 20080303

REACTIONS (2)
  - Transaminases increased [Recovered/Resolved]
  - Influenza like illness [Recovered/Resolved]
